FAERS Safety Report 21211311 (Version 1)
Quarter: 2022Q3

REPORT INFORMATION
  Report Type: Spontaneous
  Country: US (occurrence: None)
  Receive Date: 20220812
  Receipt Date: 20220812
  Transmission Date: 20221027
  Serious: Yes (Disabling)
  Sender: FDA-Public Use
  Company Number: None

PATIENT
  Age: 63 Year
  Sex: Female
  Weight: 115.2 kg

DRUGS (1)
  1. BEBTELOVIMAB [Suspect]
     Active Substance: BEBTELOVIMAB
     Indication: COVID-19
     Dates: start: 20220721, end: 20220721

REACTIONS (6)
  - Generalised oedema [None]
  - Mobility decreased [None]
  - Weight increased [None]
  - Fatigue [None]
  - Myalgia [None]
  - Dyspnoea [None]

NARRATIVE: CASE EVENT DATE: 20220724
